FAERS Safety Report 7984261-8 (Version None)
Quarter: 2011Q4

REPORT INFORMATION
  Report Type: 
  Country: None (occurrence: None)
  Receive Date: 20111214
  Receipt Date: 20111130
  Transmission Date: 20120403
  Serious: Yes (Hospitalization)
  Sender: FDA-Public Use
  Company Number: 1000026141

PATIENT
  Age: 86 Year
  Sex: Female
  Weight: 56 kg

DRUGS (6)
  1. COAPROVEL (IRBESARTAN, HYDROCHLOROTHIAZIDE)(IRBESARTAN HYDROCHLOROTHIA [Concomitant]
  2. LERCAN (LERCANIDIPINE HYDROCHLORIDE)(LERCANIDIPINE HYDROCHLORIDE) [Concomitant]
  3. FLAGYL [Suspect]
     Dosage: 3 DF (3 DOSAGE FORMS, 1 IN 1 D),ORAL
     Route: 048
     Dates: start: 20110817, end: 20110902
  4. CORDARONE (CORDARONE) [Concomitant]
  5. OFLOCET (OFLOXACIN)(200 MILLIGRAM) [Suspect]
     Dosage: 2 DF (2 DOSAGE FORMS, 1 IN 1 D),ORAL
     Route: 048
     Dates: start: 20110817, end: 20110902
  6. ESCITALOPRAM OXALATE [Suspect]
     Dosage: 1 DF (1 DOSAGE FORMS, 1 IN 1 D),ORAL
     Route: 048
     Dates: end: 20110818

REACTIONS (3)
  - ALTERED STATE OF CONSCIOUSNESS [None]
  - DISORIENTATION [None]
  - HYPONATRAEMIA [None]
